FAERS Safety Report 13795107 (Version 4)
Quarter: 2017Q3

REPORT INFORMATION
  Report Type: Report from Study
  Country: CA (occurrence: CA)
  Receive Date: 20170726
  Receipt Date: 20170814
  Transmission Date: 20171127
  Serious: Yes (Other)
  Sender: FDA-Public Use
  Company Number: PHHY2013CA114425

PATIENT
  Age: 64 Year
  Sex: Male

DRUGS (6)
  1. SANDOSTATIN [Suspect]
     Active Substance: OCTREOTIDE ACETATE
     Indication: NEUROENDOCRINE TUMOUR
     Dosage: 50 MCG TEST DOSE
     Route: 058
     Dates: start: 20130829, end: 20130829
  2. MORPHINE [Concomitant]
     Active Substance: MORPHINE
     Indication: PRODUCT USED FOR UNKNOWN INDICATION
     Route: 065
  3. SANDOSTATIN LAR DEPOT [Suspect]
     Active Substance: OCTREOTIDE ACETATE
     Dosage: 30 MG, QMO (EVERY 4 WEEKS)
     Route: 030
  4. METOPROLOL. [Suspect]
     Active Substance: METOPROLOL
     Indication: PRODUCT USED FOR UNKNOWN INDICATION
     Dosage: UNK
     Route: 048
  5. SANDOSTATIN LAR DEPOT [Suspect]
     Active Substance: OCTREOTIDE ACETATE
     Indication: NEUROENDOCRINE TUMOUR
     Dosage: 30 MG, QMO (EVERY 4 WEEKS)
     Route: 030
     Dates: start: 20130911
  6. SANDOSTATIN LAR DEPOT [Suspect]
     Active Substance: OCTREOTIDE ACETATE
     Dosage: 60 MG, ONCE
     Route: 030
     Dates: start: 20141106

REACTIONS (31)
  - Post procedural complication [Unknown]
  - Neoplasm progression [Unknown]
  - Flushing [Unknown]
  - Faeces soft [Unknown]
  - Toothache [Recovered/Resolved]
  - Ear pain [Recovered/Resolved]
  - Abdominal pain [Unknown]
  - Arthralgia [Unknown]
  - Chills [Unknown]
  - Abdominal pain upper [Unknown]
  - Nausea [Unknown]
  - Lung neoplasm [Unknown]
  - Blood pressure diastolic increased [Unknown]
  - Abnormal dreams [Unknown]
  - Faeces discoloured [Recovered/Resolved]
  - Cholelithiasis [Unknown]
  - Abdominal pain [Recovered/Resolved]
  - Constipation [Unknown]
  - Blood pressure increased [Unknown]
  - Sleep disorder [Unknown]
  - Incision site pain [Unknown]
  - Vomiting [Unknown]
  - Body temperature decreased [Unknown]
  - Heart rate decreased [Unknown]
  - Abdominal discomfort [Unknown]
  - Pancreatic enzymes increased [Recovered/Resolved]
  - Influenza like illness [Unknown]
  - Pain [Unknown]
  - Diarrhoea [Unknown]
  - Headache [Recovered/Resolved]
  - Tenderness [Unknown]

NARRATIVE: CASE EVENT DATE: 20130911
